FAERS Safety Report 6815739-8 (Version None)
Quarter: 2010Q3

REPORT INFORMATION
  Report Type: 
  Country: None (occurrence: None)
  Receive Date: 20100702
  Receipt Date: 20100625
  Transmission Date: 20110219
  Serious: Yes (Other)
  Sender: FDA-Public Use
  Company Number: US-AMGEN-QUU420644

PATIENT
  Sex: Female

DRUGS (3)
  1. NPLATE [Suspect]
     Indication: IDIOPATHIC THROMBOCYTOPENIC PURPURA
     Dates: start: 20090924, end: 20100401
  2. CORTICOSTEROIDS [Concomitant]
     Dates: start: 20070301
  3. IMMU-G [Concomitant]
     Route: 042
     Dates: start: 20080401

REACTIONS (2)
  - CEREBRAL THROMBOSIS [None]
  - HEADACHE [None]
